FAERS Safety Report 5133104-9 (Version None)
Quarter: 2006Q4

REPORT INFORMATION
  Report Type: 
  Country: None (occurrence: None)
  Receive Date: 20061017
  Receipt Date: 20061005
  Transmission Date: 20070319
  Serious: Yes (Death)
  Sender: FDA-Public Use
  Company Number: 2006VX000698

PATIENT
  Age: 68 Year
  Sex: Female
  Weight: 58 kg

DRUGS (1)
  1. FLURAZEPAM HYDROCHLORIDE (FLURAZEPAM HYDROCHLORIDE) (15 MG) [Suspect]
     Indication: INSOMNIA

REACTIONS (8)
  - COMPLETED SUICIDE [None]
  - DRUG TOXICITY [None]
  - HEPATIC CONGESTION [None]
  - INTENTIONAL OVERDOSE [None]
  - PULMONARY CONGESTION [None]
  - PULMONARY OEDEMA [None]
  - RESPIRATORY DEPRESSION [None]
  - SPLEEN CONGESTION [None]
